FAERS Safety Report 6119207-0 (Version None)
Quarter: 2009Q1

REPORT INFORMATION
  Report Type: 
  Country: None (occurrence: None)
  Receive Date: 20090311
  Receipt Date: 20090226
  Transmission Date: 20090719
  Serious: Yes (Hospitalization)
  Sender: FDA-Public Use
  Company Number: 2009AL001215

PATIENT
  Age: 67 Year
  Sex: Male

DRUGS (10)
  1. SPIRONOLACTONE [Suspect]
     Indication: CARDIAC FAILURE
     Dosage: 50 MG; QD; PO
     Route: 048
     Dates: start: 20080601
  2. PROPRANOLOL HCL [Suspect]
     Indication: HYPERTENSION
     Dosage: 20 MG; BID; PO
     Route: 048
     Dates: start: 20020101
  3. TORASEMIDE [Concomitant]
  4. DIOVAN HCT [Concomitant]
  5. CYMBALTA [Concomitant]
  6. CELEBREX [Concomitant]
  7. METFORMIN HCL [Concomitant]
  8. SPIRIVA [Concomitant]
  9. THIAMAZOLE [Concomitant]
  10. VIANI [Concomitant]

REACTIONS (2)
  - DIZZINESS [None]
  - HYPOTENSION [None]
